FAERS Safety Report 19447383 (Version 1)
Quarter: 2021Q2

REPORT INFORMATION
  Report Type: Spontaneous
  Country: US (occurrence: US)
  Receive Date: 20210621
  Receipt Date: 20210621
  Transmission Date: 20210717
  Serious: Yes (Other)
  Sender: FDA-Public Use
  Company Number: None

PATIENT
  Age: 70 Year
  Sex: Female

DRUGS (7)
  1. AMLODIPINE 2.5 MG [Concomitant]
     Active Substance: AMLODIPINE BESYLATE
  2. TOPROL XL 25 MG [Concomitant]
  3. LOSARTAN 25 MG [Concomitant]
     Active Substance: LOSARTAN
  4. VASCEPA [Concomitant]
     Active Substance: ICOSAPENT ETHYL
  5. REPATHA [Suspect]
     Active Substance: EVOLOCUMAB
     Indication: HYPERCHOLESTEROLAEMIA
     Dosage: ?          OTHER FREQUENCY:EVERY OTHER WEEK;?
     Route: 058
     Dates: start: 20210506, end: 20210621
  6. HUMULIN R U?500 [Concomitant]
     Active Substance: INSULIN HUMAN
  7. BRILLINTA 60 MG [Concomitant]

REACTIONS (3)
  - Impaired gastric emptying [None]
  - Diarrhoea [None]
  - Middle insomnia [None]

NARRATIVE: CASE EVENT DATE: 20210521
